FAERS Safety Report 9547748 (Version 1)
Quarter: 2013Q3

REPORT INFORMATION
  Report Type: Spontaneous
  Country: CH (occurrence: None)
  Receive Date: 20130920
  Receipt Date: 20130920
  Transmission Date: 20140515
  Serious: Yes (Disabling)
  Sender: FDA-Public Use
  Company Number: 20130486

PATIENT
  Age: 28 Year
  Sex: Female

DRUGS (1)
  1. FERINJECT [Suspect]
     Indication: IRON DEFICIENCY ANAEMIA
     Dosage: 10 ML (1 TOTAL) INJECTON NOS
     Dates: start: 20130703, end: 20130703

REACTIONS (2)
  - Influenza like illness [None]
  - Injection site reaction [None]
